FAERS Safety Report 24854030 (Version 1)
Quarter: 2025Q1

REPORT INFORMATION
  Report Type: Spontaneous
  Country: US (occurrence: US)
  Receive Date: 20250117
  Receipt Date: 20250117
  Transmission Date: 20250408
  Serious: Yes (Hospitalization, Other)
  Sender: Steriscience PTE
  Company Number: US-STERISCIENCE B.V.-2024-ST-001583

PATIENT
  Age: 46 Year
  Sex: Male

DRUGS (10)
  1. MIDAZOLAM [Suspect]
     Active Substance: MIDAZOLAM
     Indication: Delirium tremens
     Route: 065
  2. DEXMEDETOMIDINE [Concomitant]
     Active Substance: DEXMEDETOMIDINE
     Indication: Delirium tremens
     Route: 065
  3. DEXMEDETOMIDINE [Concomitant]
     Active Substance: DEXMEDETOMIDINE
     Dosage: 1.6 MICROGRAM/KILOGRAM, QH DOSE WAS INCREASED HERE
     Route: 065
  4. DEXMEDETOMIDINE [Concomitant]
     Active Substance: DEXMEDETOMIDINE
     Route: 065
  5. LORAZEPAM [Concomitant]
     Active Substance: LORAZEPAM
     Indication: Delirium tremens
     Route: 051
  6. PROPOFOL [Concomitant]
     Active Substance: PROPOFOL
     Indication: Delirium tremens
     Route: 065
  7. PROPOFOL [Concomitant]
     Active Substance: PROPOFOL
     Route: 065
  8. PHENYTOIN [Concomitant]
     Active Substance: PHENYTOIN
     Indication: Delirium tremens
     Route: 065
  9. PHENYTOIN [Concomitant]
     Active Substance: PHENYTOIN
     Dosage: SCHEDULED DOSES OF 260MG EVERY 8?HOURS
     Route: 065
  10. THIAMINE [Concomitant]
     Active Substance: THIAMINE
     Indication: Delirium tremens
     Route: 065

REACTIONS (1)
  - Drug ineffective for unapproved indication [Unknown]
